FAERS Safety Report 12631749 (Version 2)
Quarter: 2016Q3

REPORT INFORMATION
  Report Type: Spontaneous
  Country: US (occurrence: US)
  Receive Date: 20160808
  Receipt Date: 20160808
  Transmission Date: 20161109
  Serious: No
  Sender: FDA-Public Use
  Company Number: US-BEH-2016060889

PATIENT
  Age: 39 Year
  Sex: Male
  Weight: 85 kg

DRUGS (24)
  1. HIZENTRA [Suspect]
     Active Substance: HUMAN IMMUNOGLOBULIN G
  2. LEXAPRO [Concomitant]
     Active Substance: ESCITALOPRAM OXALATE
  3. LAMICTAL [Concomitant]
     Active Substance: LAMOTRIGINE
  4. LIDOCAINE/PRILOCAINE [Concomitant]
     Active Substance: LIDOCAINE\PRILOCAINE
  5. RANITIDINE. [Concomitant]
     Active Substance: RANITIDINE
  6. HIZENTRA [Suspect]
     Active Substance: HUMAN IMMUNOGLOBULIN G
     Indication: IMMUNODEFICIENCY COMMON VARIABLE
  7. HIZENTRA [Suspect]
     Active Substance: HUMAN IMMUNOGLOBULIN G
     Route: 058
     Dates: start: 20110210
  8. CEFDINIR. [Concomitant]
     Active Substance: CEFDINIR
  9. SUDAFED [Concomitant]
     Active Substance: PSEUDOEPHEDRINE HYDROCHLORIDE
  10. FLOVENT [Concomitant]
     Active Substance: FLUTICASONE PROPIONATE
  11. PRAVASTATIN. [Concomitant]
     Active Substance: PRAVASTATIN
  12. DIPHENHYDRAMINE. [Concomitant]
     Active Substance: DIPHENHYDRAMINE
  13. BUSPIRONE [Concomitant]
     Active Substance: BUSPIRONE HYDROCHLORIDE
  14. DIFLUCAN [Concomitant]
     Active Substance: FLUCONAZOLE
  15. ALBUTEROL. [Concomitant]
     Active Substance: ALBUTEROL
  16. NASAL SPRAY [Concomitant]
     Active Substance: UNSPECIFIED INGREDIENT
  17. PREDNISONE. [Concomitant]
     Active Substance: PREDNISONE
  18. AUGMENTIN [Concomitant]
     Active Substance: AMOXICILLIN\CLAVULANATE POTASSIUM
  19. FLONASE [Concomitant]
     Active Substance: FLUTICASONE PROPIONATE
  20. ACETAMINOPHEN. [Concomitant]
     Active Substance: ACETAMINOPHEN
  21. EPIPEN [Concomitant]
     Active Substance: EPINEPHRINE
  22. TYLENOL [Concomitant]
     Active Substance: ACETAMINOPHEN
  23. TOPROL XL [Concomitant]
     Active Substance: METOPROLOL SUCCINATE
  24. ALLEGRA [Concomitant]
     Active Substance: FEXOFENADINE HYDROCHLORIDE

REACTIONS (1)
  - Sinusitis [Unknown]

NARRATIVE: CASE EVENT DATE: 201512
